FAERS Safety Report 9734425 (Version 2)
Quarter: 2014Q1

REPORT INFORMATION
  Report Type: Spontaneous
  Country: US (occurrence: US)
  Receive Date: 20131206
  Receipt Date: 20140213
  Transmission Date: 20141002
  Serious: Yes (Hospitalization)
  Sender: FDA-Public Use
  Company Number: US-BEH-2013039274

PATIENT
  Sex: Female
  Weight: 61 kg

DRUGS (21)
  1. ZEMAIRA [Suspect]
     Indication: ALPHA-1 ANTI-TRYPSIN DEFICIENCY
     Dosage: MAX RATE 5.1 ML PER MIN
     Route: 042
  2. ZEMAIRA [Suspect]
     Indication: ASTHMA
     Dosage: MAX RATE 5.1 ML PER MIN
     Route: 042
  3. ZEMAIRA [Suspect]
     Indication: ASTHMA
     Dosage: MAX RATE 5.1 ML PER MIN
     Route: 042
  4. PREDNISONE [Concomitant]
  5. DIPHENHYDRAMINE [Concomitant]
  6. LIDOCAINE/PRILOCAINE [Concomitant]
  7. NORMAL SALINE [Concomitant]
  8. SODIUM CHLORIDE [Concomitant]
  9. EPI-PEN [Concomitant]
  10. LOSARTAN POTASSIUM [Concomitant]
  11. SYMBICORT [Concomitant]
     Dosage: 160-4.5 MCG
  12. TYLENOL 8 HOUR [Concomitant]
  13. PROAIR HFA [Concomitant]
  14. MUCINEX DM [Concomitant]
  15. CVS VITAMIN D [Concomitant]
  16. SINGULAIR [Concomitant]
  17. AMLODIPINE BESYLATE [Concomitant]
  18. CITALOPRAM HBR [Concomitant]
  19. CRESTOR [Concomitant]
  20. COMBIVENT [Concomitant]
  21. BENICAR [Concomitant]

REACTIONS (6)
  - Cardiac arrest [Unknown]
  - Chronic obstructive pulmonary disease [Unknown]
  - Respiratory disorder [Unknown]
  - Asthma [Unknown]
  - Hernia repair [Unknown]
  - Chest pain [Unknown]
